FAERS Safety Report 6478572-5 (Version None)
Quarter: 2009Q4

REPORT INFORMATION
  Report Type: 
  Country: None (occurrence: None)
  Receive Date: 20091207
  Receipt Date: 20091127
  Transmission Date: 20100525
  Serious: Yes (Hospitalization)
  Sender: FDA-Public Use
  Company Number: DE-ELI_LILLY_AND_COMPANY-DE200912000042

PATIENT
  Sex: Female

DRUGS (3)
  1. FORTEO [Suspect]
     Indication: OSTEOPOROSIS
     Dosage: UNK, DAILY (1/D)
     Route: 058
     Dates: start: 20080925, end: 20090916
  2. BENZOFIBRATE [Concomitant]
     Dosage: UNK, UNKNOWN
  3. CALCIUM SANDOZ FORTE D [Concomitant]
     Dosage: UNK, UNKNOWN

REACTIONS (4)
  - FALL [None]
  - FEMUR FRACTURE [None]
  - FOREARM FRACTURE [None]
  - HUMERUS FRACTURE [None]
